FAERS Safety Report 23202704 (Version 2)
Quarter: 2023Q4

REPORT INFORMATION
  Report Type: Report from Study
  Country: HU (occurrence: HU)
  Receive Date: 20231120
  Receipt Date: 20231201
  Transmission Date: 20240110
  Serious: Yes (Hospitalization)
  Sender: FDA-Public Use
  Company Number: HU-GENMAB-2023-02167

PATIENT
  Age: 56 Year
  Sex: Female
  Weight: 67 kg

DRUGS (18)
  1. EPCORITAMAB [Suspect]
     Active Substance: EPCORITAMAB
     Indication: Diffuse large B-cell lymphoma
     Dosage: 48 MG C1 (STEP-UP), CYCLES 2 - 4 (21-DAY CYCLE, WEEKLY DOSE), EVERY 1 WEEKS
     Route: 058
     Dates: start: 20230907, end: 20231026
  2. VINCRISTINE [Suspect]
     Active Substance: VINCRISTINE
     Indication: Diffuse large B-cell lymphoma
     Dosage: 2 MG, EVERY 3 WEEKS
     Route: 042
     Dates: start: 20230907, end: 20231019
  3. RITUXIMAB [Suspect]
     Active Substance: RITUXIMAB
     Indication: Diffuse large B-cell lymphoma
     Dosage: 665 MG, EVERY 3 WEEKS
     Route: 042
     Dates: start: 20230907, end: 20231019
  4. CYCLOPHOSPHAMIDE [Suspect]
     Active Substance: CYCLOPHOSPHAMIDE
     Indication: Diffuse large B-cell lymphoma
     Dosage: 1331 MG, EVERY 3 WEEKS
     Route: 042
     Dates: start: 20230907, end: 20231019
  5. DOXORUBICIN [Suspect]
     Active Substance: DOXORUBICIN
     Indication: Diffuse large B-cell lymphoma
     Dosage: 89 MG, EVERY 3 WEEKS
     Route: 042
     Dates: start: 20230907, end: 20231019
  6. PREDNISONE [Suspect]
     Active Substance: PREDNISONE
     Indication: Diffuse large B-cell lymphoma
     Dosage: 100 MG DAYS 1-5 OF EACH 21-DAY CYCLE; C1-6, EVERY 1 DAYS
     Route: 048
     Dates: start: 20230907, end: 20231023
  7. CURIDOL [PARACETAMOL;TRAMADOL HYDROCHLORIDE] [Concomitant]
     Indication: Pain
     Dosage: 37.5/325 MG, 2/DAYS
     Dates: start: 20230913
  8. METAMIZOLE SODIUM [Concomitant]
     Active Substance: METAMIZOLE SODIUM
     Indication: Pain
     Dosage: 500 MG, AS NECESSARY
     Dates: start: 20230913
  9. ENOXAPARIN [Concomitant]
     Active Substance: ENOXAPARIN
     Indication: Thrombosis prophylaxis
     Dosage: 0.4 ML, EVERY 1 DAYS
     Dates: start: 20230907
  10. ALLOPURINOL [Concomitant]
     Active Substance: ALLOPURINOL
     Indication: Prophylaxis
     Dosage: 300 MG, EVERY 1 DAYS
     Dates: start: 20230908
  11. ACYCLOVIR [Concomitant]
     Active Substance: ACYCLOVIR
     Indication: Antiviral prophylaxis
     Dosage: 400 MG, 2/DAYS
     Dates: start: 20230908
  12. VOMITA [Concomitant]
     Indication: Nausea
     Dosage: 8 MG, AS NECESSARY
     Dates: start: 20230908
  13. FENTANYL [Concomitant]
     Active Substance: FENTANYL\FENTANYL CITRATE
     Indication: Pain
     Dosage: 25MG/H, TRANSDERMAL, EVERY 3 DAYS
     Route: 062
     Dates: start: 20230908
  14. FILGRASTIM [Concomitant]
     Active Substance: FILGRASTIM
     Indication: Prophylaxis
     Dosage: 48 MIU, EVERY 1 DAYS
     Dates: start: 20231022, end: 20231025
  15. DIHYDROCODEINE BITARTRATE [Concomitant]
     Active Substance: DIHYDROCODEINE BITARTRATE
     Indication: Upper respiratory tract infection
     Dosage: 10 MG, 3/DAYS
     Dates: start: 20231018
  16. MILGAMMA NEURO [Concomitant]
     Indication: Polyneuropathy
     Dosage: 100/100MG, 2/DAYS
     Dates: start: 20230923
  17. PANTOPRAZOLE [Concomitant]
     Active Substance: PANTOPRAZOLE
     Indication: Prophylaxis against gastrointestinal ulcer
     Dosage: 40 MG, 2/DAYS
     Dates: start: 20231109
  18. ZOLEDRONIC ACID [Concomitant]
     Active Substance: ZOLEDRONIC ACID
     Indication: Metastases to bone
     Dosage: 4 MG, EVERY 3 WEEKS
     Dates: start: 20230928

REACTIONS (1)
  - Pneumocystis jirovecii pneumonia [Recovered/Resolved]

NARRATIVE: CASE EVENT DATE: 20231109
